FAERS Safety Report 9572148 (Version 2)
Quarter: 2013Q4

REPORT INFORMATION
  Report Type: Spontaneous
  Country: US (occurrence: US)
  Receive Date: 20131001
  Receipt Date: 20131115
  Transmission Date: 20140711
  Serious: No
  Sender: FDA-Public Use
  Company Number: US-BIOGENIDEC-2013BI067403

PATIENT
  Age: 41 Year
  Sex: Female

DRUGS (1)
  1. TECFIDERA [Suspect]
     Indication: MULTIPLE SCLEROSIS
     Route: 048
     Dates: start: 20130711, end: 20130713

REACTIONS (10)
  - Weight decreased [Unknown]
  - Vision blurred [Unknown]
  - Vomiting [Unknown]
  - Diarrhoea [Unknown]
  - Flushing [Unknown]
  - Dehydration [Unknown]
  - Dysgeusia [Not Recovered/Not Resolved]
  - Malaise [Unknown]
  - Rash [Unknown]
  - Nausea [Not Recovered/Not Resolved]
